FAERS Safety Report 25980812 (Version 1)
Quarter: 2025Q4

REPORT INFORMATION
  Report Type: Spontaneous
  Country: US (occurrence: None)
  Receive Date: 20251030
  Receipt Date: 20251030
  Transmission Date: 20260118
  Serious: Yes (Hospitalization)
  Sender: FDA-CTU
  Company Number: None

PATIENT
  Sex: Female

DRUGS (1)
  1. HYQVIA [Suspect]
     Active Substance: HUMAN IMMUNOGLOBULIN G\HYALURONIDASE (HUMAN RECOMBINANT)
     Indication: Combined immunodeficiency
     Dosage: 30 G FRAM(S) EVERY 4 WEEKS SUBCUTANEOUS
     Route: 058
     Dates: start: 20191123

REACTIONS (3)
  - Migraine [None]
  - Pyrexia [None]
  - Hypobarism [None]
